FAERS Safety Report 8306719-4 (Version None)
Quarter: 2012Q2

REPORT INFORMATION
  Report Type: 
  Country: None (occurrence: None)
  Receive Date: 20120424
  Receipt Date: 20120416
  Transmission Date: 20120825
  Serious: Yes (Other)
  Sender: FDA-Public Use
  Company Number: US-BAYER-2012-037822

PATIENT
  Age: 44 Year
  Sex: Female
  Weight: 89.796 kg

DRUGS (15)
  1. NEURONTIN [Suspect]
     Dosage: 1600 MG, DAILY
  2. BACLOFEN [Suspect]
     Indication: MUSCLE SPASMS
     Dosage: UNKNOWN
  3. BETASERON [Suspect]
     Indication: MULTIPLE SCLEROSIS
     Dosage: 0.25/1MG/ML QOD
  4. PRISTIQ [Suspect]
     Indication: DEPRESSION
     Dosage: 50 MG, QD
  5. PRISTIQ [Suspect]
     Dosage: 50 MG, QD
  6. TRAMADOL HYDROCHLORIDE [Suspect]
     Indication: PAIN
     Dosage: 50MG TO 300MG DAILY
  7. ADDERALL 5 [Suspect]
     Indication: ANXIETY
     Dosage: 30 MG, QD
  8. PRISTIQ [Suspect]
     Dosage: 50 MG, QOD
     Route: 048
     Dates: start: 20120101
  9. PERCOCET [Suspect]
     Indication: PAIN
     Dosage: (10/325MG) UP TO 8 TABLETS, PRN
     Route: 048
  10. XANAX [Suspect]
     Indication: ANXIETY
     Dosage: 0.25 MG, 4 TO 5 TABLETS
     Route: 048
  11. XANAX [Suspect]
     Indication: HEADACHE
  12. NEURONTIN [Suspect]
     Indication: MUSCLE SPASTICITY
     Dosage: 300 MG, DAILY
  13. ADDERALL 5 [Suspect]
     Indication: NERVOUS SYSTEM DISORDER
  14. PRISTIQ [Suspect]
     Dosage: 100 MG, QD
  15. SYNTHROID [Suspect]
     Indication: THYROID DISORDER
     Dosage: 50 G, DAILY

REACTIONS (7)
  - DRUG DETOXIFICATION [None]
  - HEADACHE [None]
  - DYSPEPSIA [None]
  - DRUG WITHDRAWAL SYNDROME [None]
  - CATATONIA [None]
  - NONSPECIFIC REACTION [None]
  - ANXIETY [None]
